FAERS Safety Report 19675631 (Version 1)
Quarter: 2021Q3

REPORT INFORMATION
  Report Type: Spontaneous
  Country: NL (occurrence: NL)
  Receive Date: 20210809
  Receipt Date: 20210809
  Transmission Date: 20211014
  Serious: Yes (Other)
  Sender: FDA-Public Use
  Company Number: NL-TEVA-2021-NL-1939235

PATIENT
  Age: 52 Year
  Sex: Female
  Weight: 61 kg

DRUGS (1)
  1. NAPROXEN / BRAND NAME NOT SPECIFIED [Suspect]
     Active Substance: NAPROXEN
     Indication: RHEUMATIC DISORDER
     Dosage: THERAPY END DATE:ASKU
     Dates: start: 20210514

REACTIONS (1)
  - Cutaneous vasculitis [Recovering/Resolving]

NARRATIVE: CASE EVENT DATE: 20210613
